FAERS Safety Report 16174717 (Version 2)
Quarter: 2019Q2

REPORT INFORMATION
  Report Type: Spontaneous
  Country: KR (occurrence: KR)
  Receive Date: 20190409
  Receipt Date: 20190503
  Transmission Date: 20190711
  Serious: Yes (Other)
  Sender: FDA-Public Use
  Company Number: KR-009507513-1903KOR007321

PATIENT
  Sex: Female

DRUGS (5)
  1. KEYTRUDA [Suspect]
     Active Substance: PEMBROLIZUMAB
     Dosage: QUANTITY: 2, DAYS: 1
     Dates: start: 20190423, end: 20190423
  2. FEROBA U [Concomitant]
     Active Substance: FERROUS SULFATE
     Dosage: QUANTITY 2 , DAYS 28
     Route: 048
     Dates: start: 20190423
  3. KEYTRUDA [Suspect]
     Active Substance: PEMBROLIZUMAB
     Dosage: QUANTITY: 2, DAYS: 1
     Dates: start: 20190326, end: 20190326
  4. KEYTRUDA [Suspect]
     Active Substance: PEMBROLIZUMAB
     Indication: CERVIX CARCINOMA
     Dosage: QUANTITY: 2, DAYS: 1
     Dates: start: 20190305, end: 20190305
  5. FEROBA U [Concomitant]
     Active Substance: FERROUS SULFATE
     Dosage: QUANTITY 2 , DAYS 28
     Route: 048
     Dates: start: 20190326

REACTIONS (3)
  - Product use in unapproved indication [Unknown]
  - Inappropriate schedule of product administration [Unknown]
  - Transfusion [Recovered/Resolved]

NARRATIVE: CASE EVENT DATE: 20190305
